FAERS Safety Report 9974334 (Version 1)
Quarter: 2014Q1

REPORT INFORMATION
  Report Type: Report from Study
  Country: US (occurrence: US)
  Receive Date: 20140306
  Receipt Date: 20140306
  Transmission Date: 20141002
  Serious: No
  Sender: FDA-Public Use
  Company Number: US-ABBVIE-13P-163-1156912-00

PATIENT
  Age: 55 Year
  Sex: Female
  Weight: 77.18 kg

DRUGS (6)
  1. HUMIRA [Suspect]
     Indication: RHEUMATOID ARTHRITIS
     Dates: start: 201302, end: 201303
  2. HUMIRA [Suspect]
     Dates: start: 201303
  3. SYNVISC [Concomitant]
     Indication: BONE EROSION
     Route: 050
     Dates: start: 201302
  4. CELEBREX [Concomitant]
     Indication: PRODUCT USED FOR UNKNOWN INDICATION
  5. VOLTAREN [Concomitant]
     Indication: PRODUCT USED FOR UNKNOWN INDICATION
  6. LIDOCAINE [Concomitant]
     Indication: PRODUCT USED FOR UNKNOWN INDICATION
     Route: 062

REACTIONS (6)
  - Musculoskeletal pain [Not Recovered/Not Resolved]
  - Influenza [Recovered/Resolved]
  - Influenza [Recovered/Resolved]
  - Bacterial vaginosis [Recovered/Resolved]
  - Nasopharyngitis [Recovered/Resolved]
  - Injection site pain [Not Recovered/Not Resolved]
